FAERS Safety Report 8436020-X (Version None)
Quarter: 2012Q2

REPORT INFORMATION
  Report Type: 
  Country: None (occurrence: None)
  Receive Date: 20120607
  Receipt Date: 20120607
  Transmission Date: 20120825
  Serious: Yes (Disabling, Other)
  Sender: FDA-Public Use
  Company Number: None

PATIENT
  Sex: Male
  Weight: 73.4827 kg

DRUGS (1)
  1. PROPECIA [Suspect]
     Indication: ALOPECIA
     Dosage: 1 TABLET DAILY 6 MONTHS
     Dates: start: 20080901, end: 20090501

REACTIONS (6)
  - ANXIETY [None]
  - ERECTILE DYSFUNCTION [None]
  - PANIC ATTACK [None]
  - ARTHRALGIA [None]
  - AMNESIA [None]
  - EMOTIONAL DISTRESS [None]
